FAERS Safety Report 24532585 (Version 2)
Quarter: 2024Q4

REPORT INFORMATION
  Report Type: Report from Study
  Country: AR (occurrence: AR)
  Receive Date: 20241022
  Receipt Date: 20241120
  Transmission Date: 20250114
  Serious: No
  Sender: ROCHE
  Company Number: AR-ROCHE-10000110810

PATIENT
  Age: 56 Year
  Sex: Female

DRUGS (4)
  1. OCREVUS [Suspect]
     Active Substance: OCRELIZUMAB
     Indication: Relapsing-remitting multiple sclerosis
     Route: 065
     Dates: start: 202310
  2. OCREVUS [Suspect]
     Active Substance: OCRELIZUMAB
     Route: 065
  3. DALFYRAN [Concomitant]
     Indication: Gait disturbance
  4. NAPROXEN [Concomitant]
     Active Substance: NAPROXEN

REACTIONS (3)
  - Demyelination [Unknown]
  - Migraine [Unknown]
  - Hypoaesthesia [Unknown]
